FAERS Safety Report 5101256-2 (Version None)
Quarter: 2006Q3

REPORT INFORMATION
  Report Type: 
  Country: None (occurrence: None)
  Receive Date: 20060911
  Receipt Date: 20060830
  Transmission Date: 20061208
  Serious: Yes (Other)
  Sender: FDA-Public Use
  Company Number: GB-ROCHE-462352

PATIENT
  Age: 43 Year
  Sex: Female
  Weight: 117 kg

DRUGS (1)
  1. XENICAL [Suspect]
     Indication: OBESITY
     Route: 048
     Dates: start: 20060828

REACTIONS (3)
  - CHEST PAIN [None]
  - DYSPNOEA [None]
  - NAUSEA [None]
